FAERS Safety Report 13638552 (Version 2)
Quarter: 2017Q3

REPORT INFORMATION
  Report Type: Spontaneous
  Country: US (occurrence: US)
  Receive Date: 20170609
  Receipt Date: 20170911
  Transmission Date: 20171127
  Serious: Yes (Hospitalization, Other)
  Sender: FDA-Public Use
  Company Number: US-PFIZER INC-2017252676

PATIENT
  Age: 78 Year
  Sex: Male

DRUGS (27)
  1. CRANBERRY. [Concomitant]
     Active Substance: CRANBERRY
     Dosage: 1500 MG, DAILY
  2. VANCOMYCIN [Concomitant]
     Active Substance: VANCOMYCIN
     Dosage: 2.5 ML, 2X/DAY (FOR 7 DAYS)
  3. VANCOMYCIN [Concomitant]
     Active Substance: VANCOMYCIN
     Dosage: 2.5 ML, 2X/DAY (FOR 7 DAYS)
  4. TUMS /00193601/ [Concomitant]
     Active Substance: CALCIUM CARBONATE\MAGNESIUM CARBONATE\MAGNESIUM TRISILICATE
     Dosage: 1200 MG, DAILY
  5. IPRATROPIUM BROMIDE AND ALBUTEROL SULFATE [Concomitant]
     Active Substance: ALBUTEROL SULFATE\IPRATROPIUM BROMIDE
     Dosage: UNK, DAILY [IPRATROPIUM BROMIDE (0.5MG) AND ALBUTEROL SULFATE (3.0 MG) ]( 2-4X DAILY)
  6. EFFEXOR XR [Suspect]
     Active Substance: VENLAFAXINE HYDROCHLORIDE
     Indication: DEPRESSION
     Dosage: 300 MG, 1X/DAY (2 - 150 MG CAPSULES )
     Dates: start: 2007
  7. LOMOTIL [Concomitant]
     Active Substance: ATROPINE SULFATE\DIPHENOXYLATE HYDROCHLORIDE
     Dosage: UNK, AS NEEDED
  8. MOVANTIK [Concomitant]
     Active Substance: NALOXEGOL OXALATE
     Dosage: 25 MG, DAILY
  9. NITROGLYCERIN ABCUR [Concomitant]
     Dosage: 0.4 MG, AS NEEDED
  10. BUDESONIDE. [Concomitant]
     Active Substance: BUDESONIDE
     Dosage: 2 DF, DAILY (0.5MG/2 ML) (NEB) (2 DAILY)
  11. MIRALAX [Concomitant]
     Active Substance: POLYETHYLENE GLYCOL 3350
     Dosage: 1 DF, DAILY (17-34 GRAMS DAILY)
  12. TRAZODONE [Concomitant]
     Active Substance: TRAZODONE HYDROCHLORIDE
     Dosage: 50 MG, 1X/DAY, (NIGHT)
  13. VANCOMYCIN [Concomitant]
     Active Substance: VANCOMYCIN
     Dosage: 2.5 ML, 4X/DAY (FOR 10 DAYS)
     Dates: start: 20170628
  14. VANCOMYCIN [Concomitant]
     Active Substance: VANCOMYCIN
     Dosage: 2.5 ML, 2X/DAY (EVERY OTHER DAY FOR 7 DAYS)
  15. FLONASE [Concomitant]
     Active Substance: FLUTICASONE PROPIONATE
     Dosage: UNK UNK, DAILY (2 SPRAYS EACH NOSTRIL)
     Route: 045
  16. FLORAJEN 3 [Concomitant]
     Active Substance: PROBIOTICS NOS
     Dosage: 1 DF, DAILY
  17. DIOVAN [Concomitant]
     Active Substance: VALSARTAN
     Dosage: 80 MG, DAILY
  18. OPANA [Concomitant]
     Active Substance: OXYMORPHONE HYDROCHLORIDE
     Dosage: 50 MG, 2X/DAY, (ONE 30/ONE 20)
  19. NEURONTIN [Concomitant]
     Active Substance: GABAPENTIN
     Dosage: 300 MG, DAILY (1 AM PILLS, 2- 1 PM, 1-10 PM)
  20. AMLODIPINE BESYLATE. [Concomitant]
     Active Substance: AMLODIPINE BESYLATE
     Dosage: 10 MG, DAILY
  21. WELLBUTRIN SR [Concomitant]
     Active Substance: BUPROPION HYDROCHLORIDE
     Dosage: 200 MG, DAILY
  22. COLACE [Concomitant]
     Active Substance: DOCUSATE SODIUM
     Dosage: 200 MG, DAILY
  23. KRILL OIL [Concomitant]
     Active Substance: DIETARY SUPPLEMENT
     Dosage: 350 MG, DAILY
  24. OPANA [Concomitant]
     Active Substance: OXYMORPHONE HYDROCHLORIDE
     Dosage: 50 MG, 2X/DAY, (ONE 30/ONE 20)
  25. VANCOMYCIN [Concomitant]
     Active Substance: VANCOMYCIN
     Dosage: 2.5 ML, 2X/DAY (EVERY 3 DAYS FOR 14 DAYS)
  26. XANAX [Concomitant]
     Active Substance: ALPRAZOLAM
     Dosage: UNK UNK, AS NEEDED, (USUALLY 1-2 DAILY)
  27. BABY ASPIRIN [Concomitant]
     Active Substance: ASPIRIN
     Dosage: 1 DF, DAILY

REACTIONS (7)
  - Drug dependence [Unknown]
  - Staphylococcal infection [Unknown]
  - Agitation [Unknown]
  - Urinary tract infection [Unknown]
  - Bedridden [Unknown]
  - Clostridium difficile infection [Unknown]
  - Ulcer [Recovered/Resolved]

NARRATIVE: CASE EVENT DATE: 20170105
